FAERS Safety Report 9013926 (Version 1)
Quarter: 2013Q1

REPORT INFORMATION
  Report Type: Spontaneous
  Country: US (occurrence: None)
  Receive Date: 20130109
  Receipt Date: 20130109
  Transmission Date: 20140127
  Serious: Yes (Life-Threatening, Hospitalization)
  Sender: FDA-Public Use
  Company Number: None

PATIENT
  Age: 62 Year
  Sex: Female
  Weight: 35.38 kg

DRUGS (2)
  1. FLUOROURACIL, 50MG/ML UNAVAILABLE FOR REPORT [Suspect]
     Indication: OESOPHAGEAL CARCINOMA
     Route: 040
  2. OXALIPLATIN, 5MG/ML, UNAVAILABLE FOR REPORT [Suspect]
     Route: 042

REACTIONS (7)
  - Nausea [None]
  - Mental status changes [None]
  - Unresponsive to stimuli [None]
  - Convulsion [None]
  - Vitamin B complex deficiency [None]
  - Toxicity to various agents [None]
  - Malnutrition [None]
